FAERS Safety Report 4929204-6 (Version None)
Quarter: 2006Q1

REPORT INFORMATION
  Report Type: 
  Country: None (occurrence: None)
  Receive Date: 20060301
  Receipt Date: 20050815
  Transmission Date: 20060701
  Serious: Yes (Death, Other)
  Sender: FDA-Public Use
  Company Number: US-MERCK-0508USA02620

PATIENT
  Age: 75 Year
  Sex: Male
  Weight: 82 kg

DRUGS (1)
  1. VIOXX [Suspect]
     Route: 048

REACTIONS (16)
  - AMNESIA [None]
  - BACTERIAL INFECTION [None]
  - BUTTOCK PAIN [None]
  - DEATH [None]
  - DEEP VEIN THROMBOSIS [None]
  - DEMENTIA [None]
  - DIVERTICULUM INTESTINAL [None]
  - INTERVERTEBRAL DISC DISORDER [None]
  - INTERVERTEBRAL DISC PROTRUSION [None]
  - LIVER DISORDER [None]
  - MYOCARDIAL INFARCTION [None]
  - OSTEOARTHRITIS [None]
  - RADICULITIS [None]
  - SKIN INJURY [None]
  - SPINAL COLUMN STENOSIS [None]
  - TRANSIENT ISCHAEMIC ATTACK [None]
